FAERS Safety Report 17484314 (Version 1)
Quarter: 2020Q1

REPORT INFORMATION
  Report Type: Other
  Country: US (occurrence: US)
  Receive Date: 20200302
  Receipt Date: 20200302
  Transmission Date: 20200409
  Serious: Yes (Hospitalization)
  Sender: FDA-Public Use
  Company Number: US-B.BRAUN MEDICAL INC.-2081185

PATIENT
  Age: 63 Year
  Sex: Female

DRUGS (1)
  1. SODIUM CHLORIDE INJECTION USP 0264-7800-09 [Suspect]
     Active Substance: SODIUM CHLORIDE

REACTIONS (1)
  - Pleural effusion [None]
